FAERS Safety Report 7798342-5 (Version None)
Quarter: 2011Q4

REPORT INFORMATION
  Report Type: 
  Country: None (occurrence: None)
  Receive Date: 20111005
  Receipt Date: 20110928
  Transmission Date: 20120403
  Serious: Yes (Hospitalization)
  Sender: FDA-Public Use
  Company Number: US-B.I. PHARMACEUTICALS,INC./RIDGEFIELD-2011-BP-20392BP

PATIENT
  Sex: Female

DRUGS (6)
  1. ASPIRIN [Concomitant]
     Indication: CORONARY ARTERY DISEASE
  2. ASPIRIN [Concomitant]
     Indication: STENT PLACEMENT
  3. PRADAXA [Suspect]
     Indication: ATRIAL FIBRILLATION
     Dosage: 150 MG
  4. HOME OXYGEN [Concomitant]
     Indication: CHRONIC OBSTRUCTIVE PULMONARY DISEASE
  5. PLAVIX [Concomitant]
     Indication: STENT PLACEMENT
  6. PLAVIX [Concomitant]
     Indication: CORONARY ARTERY DISEASE

REACTIONS (3)
  - INTERNATIONAL NORMALISED RATIO INCREASED [None]
  - ACTIVATED PARTIAL THROMBOPLASTIN TIME PROLONGED [None]
  - MUSCULOSKELETAL PAIN [None]
